FAERS Safety Report 4819498-X (Version None)
Quarter: 2005Q4

REPORT INFORMATION
  Report Type: 
  Country: None (occurrence: None)
  Receive Date: 20051031
  Receipt Date: 20050630
  Transmission Date: 20060501
  Serious: No
  Sender: FDA-Public Use
  Company Number: 2005PV000210

PATIENT
  Sex: 0

DRUGS (2)
  1. SYMLIN [Suspect]
     Indication: DRUG USE FOR UNKNOWN INDICATION
     Dosage: SC
     Route: 058
  2. HUMALOG [Concomitant]

REACTIONS (2)
  - DEHYDRATION [None]
  - HYPERGLYCAEMIA [None]
